FAERS Safety Report 10406903 (Version 2)
Quarter: 2014Q3

REPORT INFORMATION
  Report Type: Spontaneous
  Country: US (occurrence: US)
  Receive Date: 20140825
  Receipt Date: 20140825
  Transmission Date: 20150326
  Serious: Yes (Hospitalization, Other)
  Sender: FDA-Public Use
  Company Number: US-009507513-2011SP032020

PATIENT
  Sex: Female
  Weight: 102.6 kg

DRUGS (3)
  1. NUVARING [Suspect]
     Active Substance: ETHINYL ESTRADIOL\ETONOGESTREL
     Indication: MENORRHAGIA
     Dosage: UNK
     Route: 067
     Dates: start: 2005
  2. NUVARING [Suspect]
     Active Substance: ETHINYL ESTRADIOL\ETONOGESTREL
     Indication: CONTRACEPTION
     Dosage: UNK
     Route: 067
     Dates: start: 20100527, end: 20100728
  3. PERPHENAZINE. [Suspect]
     Active Substance: PERPHENAZINE
     Indication: PRODUCT USED FOR UNKNOWN INDICATION
     Dosage: 8 MG, TID
     Dates: start: 20081114

REACTIONS (22)
  - Pleural effusion [Recovering/Resolving]
  - Cardiolipin antibody positive [Unknown]
  - Upper respiratory tract infection [Unknown]
  - Sjogren^s syndrome [Unknown]
  - Pulmonary infarction [Recovering/Resolving]
  - Inappropriate schedule of drug administration [Unknown]
  - Road traffic accident [Unknown]
  - Oropharyngeal pain [Unknown]
  - Pneumonia [Unknown]
  - Antiphospholipid antibodies positive [Unknown]
  - Pulmonary mass [Unknown]
  - Pulmonary embolism [Recovering/Resolving]
  - Generalised anxiety disorder [Not Recovered/Not Resolved]
  - Abortion spontaneous [Unknown]
  - Angioedema [Unknown]
  - Major depression [Unknown]
  - Incorrect drug administration duration [Unknown]
  - Chest pain [Unknown]
  - Exposure during pregnancy [Recovered/Resolved]
  - Abdominal pain [Unknown]
  - Menstruation irregular [Unknown]
  - Heart rate irregular [Unknown]

NARRATIVE: CASE EVENT DATE: 2005
